FAERS Safety Report 4952941-4 (Version None)
Quarter: 2006Q1

REPORT INFORMATION
  Report Type: 
  Country: None (occurrence: None)
  Receive Date: 20060321
  Receipt Date: 20060315
  Transmission Date: 20060701
  Serious: Yes (Other)
  Sender: FDA-Public Use
  Company Number: OSCN-NO-0603S-0070

PATIENT
  Age: 78 Year
  Sex: Male

DRUGS (1)
  1. OMNISCAN [Suspect]
     Dosage: SINGLE DOSE, I.V.
     Route: 042
     Dates: start: 20060101, end: 20060101

REACTIONS (2)
  - GRAND MAL CONVULSION [None]
  - PARESIS [None]
